FAERS Safety Report 6736256 (Version 2)
Quarter: 2020Q3

REPORT INFORMATION
  Report Type: Spontaneous
  Country: SE (occurrence: SE)
  Receive Date: 20080825
  Receipt Date: 20200828
  Transmission Date: 20201103
  Serious: Yes (Death, Hospitalization, Other)
  Sender: FDA-Public Use
  Company Number: SE-AVENTIS-200814879GDDC

PATIENT

DRUGS (10)
  1. TAXOTERE [Suspect]
     Active Substance: DOCETAXEL
     Indication: BREAST CANCER
     Dosage: UNK
     Dates: start: 200712, end: 200803
  2. TAXOTERE [Suspect]
     Active Substance: DOCETAXEL
     Indication: BREAST CANCER FEMALE
  3. HYDROCORTISONE ACETATE;NEOMYCIN SULFATE [Concomitant]
  4. FLUCONAZOLE. [Suspect]
     Active Substance: FLUCONAZOLE
     Indication: STOMATITIS
     Dosage: 100 MG, QD
     Route: 048
     Dates: start: 20080306
  5. CIPROFLOXACIN RANBAXY [Concomitant]
     Dosage: UNK
  6. BETAPRED [Concomitant]
     Active Substance: BETAMETHASONE SODIUM PHOSPHATE
  7. TAXOTERE [Suspect]
     Active Substance: DOCETAXEL
     Indication: METASTASES TO LIVER
  8. CAPECITABINE. [Suspect]
     Active Substance: CAPECITABINE
     Indication: BREAST CANCER FEMALE
     Dosage: UNK
     Route: 048
     Dates: start: 20080225, end: 20080306
  9. NOLVADEX [Concomitant]
     Active Substance: TAMOXIFEN CITRATE
  10. OMEPRAZOLE. [Concomitant]
     Active Substance: OMEPRAZOLE

REACTIONS (7)
  - Oral fungal infection [Recovered/Resolved]
  - Transaminases increased [Unknown]
  - Oedema [Unknown]
  - Stomatitis [Recovered/Resolved]
  - Jaundice [Unknown]
  - Hepatic cirrhosis [Fatal]
  - Blood albumin decreased [Unknown]

NARRATIVE: CASE EVENT DATE: 200803
